FAERS Safety Report 6709712-8 (Version None)
Quarter: 2010Q2

REPORT INFORMATION
  Report Type: 
  Country: None (occurrence: None)
  Receive Date: 20100504
  Receipt Date: 20100421
  Transmission Date: 20101027
  Serious: No
  Sender: FDA-Public Use
  Company Number: US-JNJFOC-20100406300

PATIENT
  Sex: Male
  Weight: 99.79 kg

DRUGS (6)
  1. DURAGESIC-100 [Suspect]
     Indication: PANCREATITIS
     Route: 062
  2. NORTRIPTYLINE HCL [Concomitant]
     Indication: SLEEP DISORDER
     Route: 048
  3. VYVANSE [Concomitant]
     Indication: ATTENTION DEFICIT/HYPERACTIVITY DISORDER
     Route: 048
  4. TOPAMAX [Concomitant]
     Indication: MIGRAINE
     Route: 048
  5. LORAZEPAM [Concomitant]
     Indication: ANXIETY
     Route: 048
  6. LORAZEPAM [Concomitant]
     Indication: MUSCLE SPASMS
     Route: 048

REACTIONS (2)
  - PRODUCT ADHESION ISSUE [None]
  - WRONG TECHNIQUE IN DRUG USAGE PROCESS [None]
